FAERS Safety Report 23587005 (Version 1)
Quarter: 2024Q1

REPORT INFORMATION
  Report Type: Spontaneous
  Country: RO (occurrence: RO)
  Receive Date: 20240301
  Receipt Date: 20240301
  Transmission Date: 20240410
  Serious: Yes (Other)
  Sender: FDA-Public Use
  Company Number: None

PATIENT
  Age: 34 Year
  Sex: Female

DRUGS (7)
  1. MYFORTIC [Suspect]
     Active Substance: MYCOPHENOLATE SODIUM
     Indication: Renal transplant
     Dosage: 720 MG
     Route: 048
     Dates: start: 20130320, end: 20140130
  2. PREDNISONE [Suspect]
     Active Substance: PREDNISONE
     Indication: Renal transplant
     Dosage: 10 MG
     Route: 048
     Dates: start: 20130320
  3. TACROLIMUS [Suspect]
     Active Substance: TACROLIMUS
     Indication: Renal transplant
     Dosage: 11 MG, QD
     Route: 048
     Dates: start: 20130320
  4. BISEPTOL [Concomitant]
     Active Substance: SULFAMETHOXAZOLE\TRIMETHOPRIM
     Indication: Prophylaxis
     Dosage: 480 MG
     Route: 048
     Dates: start: 20130320, end: 20131116
  5. FAMOTIDINE [Concomitant]
     Active Substance: FAMOTIDINE
     Indication: Prophylaxis
     Dosage: 20 MG
     Route: 048
     Dates: start: 20130320
  6. OMERAN [Concomitant]
     Indication: Prophylaxis
     Dosage: 20 MG
     Route: 048
     Dates: start: 20130320
  7. VALCYTE [Concomitant]
     Active Substance: VALGANCICLOVIR HYDROCHLORIDE
     Indication: Prophylaxis
     Dosage: 450 MG
     Route: 048
     Dates: start: 20130320, end: 20131116

REACTIONS (1)
  - Enterocolitis [Recovered/Resolved]

NARRATIVE: CASE EVENT DATE: 20231210
